FAERS Safety Report 25828521 (Version 2)
Quarter: 2025Q4

REPORT INFORMATION
  Report Type: Spontaneous
  Country: EU (occurrence: EU)
  Receive Date: 20250922
  Receipt Date: 20251014
  Transmission Date: 20260118
  Serious: No
  Sender: BEIGENE
  Company Number: EU-BEIGENE-BGN-2025-015957

PATIENT

DRUGS (1)
  1. BRUKINSA [Suspect]
     Active Substance: ZANUBRUTINIB
     Indication: Chronic lymphocytic leukaemia
     Dosage: 3 CYCLES

REACTIONS (1)
  - Lymphocytosis [Unknown]
